FAERS Safety Report 5796440-9 (Version None)
Quarter: 2008Q3

REPORT INFORMATION
  Report Type: 
  Country: None (occurrence: None)
  Receive Date: 20080701
  Receipt Date: 20080619
  Transmission Date: 20090109
  Serious: Yes (Disabling)
  Sender: FDA-Public Use
  Company Number: PHRM2008FR01483

PATIENT
  Sex: Female
  Weight: 39 kg

DRUGS (1)
  1. SANDOSTATIN [Suspect]
     Indication: MALABSORPTION
     Dosage: UNK
     Route: 030
     Dates: start: 20070101

REACTIONS (2)
  - CONSTIPATION [None]
  - FAECALOMA [None]
